FAERS Safety Report 21863517 (Version 1)
Quarter: 2023Q1

REPORT INFORMATION
  Report Type: Spontaneous
  Country: US (occurrence: US)
  Receive Date: 20230115
  Receipt Date: 20230115
  Transmission Date: 20230418
  Serious: No
  Sender: FDA-Public Use
  Company Number: US-SA-SAC20230112001046

PATIENT
  Sex: Female
  Weight: 122.5 kg

DRUGS (13)
  1. AUBAGIO [Suspect]
     Active Substance: TERIFLUNOMIDE
     Indication: Multiple sclerosis
     Dosage: 1 DF, QD
     Route: 048
     Dates: start: 202209
  2. ESTRADIOL [Concomitant]
     Active Substance: ESTRADIOL
  3. RHOFADE [Concomitant]
     Active Substance: OXYMETAZOLINE HYDROCHLORIDE
  4. TRETINOIN [Concomitant]
     Active Substance: TRETINOIN
  5. OMEPRAZOLE [Concomitant]
     Active Substance: OMEPRAZOLE
  6. PROGESTERONE [Concomitant]
     Active Substance: PROGESTERONE
  7. BACLOFEN [Concomitant]
     Active Substance: BACLOFEN
  8. PREGABALIN [Concomitant]
     Active Substance: PREGABALIN
  9. VITAMIN D3 [Concomitant]
     Active Substance: CHOLECALCIFEROL
  10. ASCORBIC ACID [Concomitant]
     Active Substance: ASCORBIC ACID
  11. DULOXETINE HYDROCHLORIDE [Concomitant]
     Active Substance: DULOXETINE HYDROCHLORIDE
  12. FISH OIL [Concomitant]
     Active Substance: FISH OIL
  13. TAPENTADOL [Concomitant]
     Active Substance: TAPENTADOL

REACTIONS (1)
  - Alopecia [Unknown]
